FAERS Safety Report 24034435 (Version 14)
Quarter: 2025Q4

REPORT INFORMATION
  Report Type: Spontaneous
  Country: CA (occurrence: CA)
  Receive Date: 20240701
  Receipt Date: 20251114
  Transmission Date: 20260117
  Serious: Yes (Other)
  Sender: CELLTRION
  Company Number: CA-CELLTRION INC.-2021CA019540

PATIENT

DRUGS (15)
  1. TRUXIMA [Suspect]
     Active Substance: RITUXIMAB-ABBS
     Indication: Rheumatoid arthritis
     Dosage: 1000 MG (DAY1 AND 15)
     Route: 042
     Dates: start: 20210803
  2. TRUXIMA [Suspect]
     Active Substance: RITUXIMAB-ABBS
     Dosage: 1000 MG (INFUSION #1)
     Route: 042
     Dates: start: 20210803
  3. TRUXIMA [Suspect]
     Active Substance: RITUXIMAB-ABBS
     Dosage: 1000 MG (INFUSION #2)
     Route: 042
     Dates: start: 20210803
  4. TRUXIMA [Suspect]
     Active Substance: RITUXIMAB-ABBS
     Dosage: 1000 MG (INFUSION #3)
     Route: 042
     Dates: start: 20210803
  5. TRUXIMA [Suspect]
     Active Substance: RITUXIMAB-ABBS
     Dosage: 1000 MG (INFUSION #5)
     Route: 042
     Dates: start: 20210803
  6. TRUXIMA [Suspect]
     Active Substance: RITUXIMAB-ABBS
     Dosage: 1000 MG (INF#7)
     Route: 042
     Dates: start: 20210803
  7. TRUXIMA [Suspect]
     Active Substance: RITUXIMAB-ABBS
     Dosage: 1000 MG DAY 15
     Route: 042
  8. TRUXIMA [Suspect]
     Active Substance: RITUXIMAB-ABBS
     Dosage: 1000 MG INF#8
     Route: 042
  9. TRUXIMA [Suspect]
     Active Substance: RITUXIMAB-ABBS
     Dosage: 1000 MG, DAY 1 AND DAY 15
     Route: 042
     Dates: start: 20210803
  10. TRUXIMA [Suspect]
     Active Substance: RITUXIMAB-ABBS
     Dosage: 1000 MILLIGRAM 1 EVERY 2 WEEKS
     Route: 042
  11. TRUXIMA [Suspect]
     Active Substance: RITUXIMAB-ABBS
     Dosage: 1000 MILLIGRAM 1 EVERY 2 WEEKS
     Route: 042
  12. BENADRYL [Concomitant]
     Active Substance: DIPHENHYDRAMINE HYDROCHLORIDE
     Indication: Premedication
     Dosage: 50 MG
     Route: 042
  13. DIPHENHYDRAMINE [Concomitant]
     Active Substance: DIPHENHYDRAMINE
     Indication: Premedication
     Dosage: 25 MG
     Route: 042
  14. PREDNISONE [Concomitant]
     Active Substance: PREDNISONE
     Indication: Premedication
     Dosage: 50 MG
  15. TYLENOL [Concomitant]
     Active Substance: ACETAMINOPHEN
     Indication: Premedication
     Dosage: 650 MG
     Route: 048

REACTIONS (27)
  - Chest discomfort [Not Recovered/Not Resolved]
  - Paranasal sinus discomfort [Not Recovered/Not Resolved]
  - Oxygen saturation decreased [Not Recovered/Not Resolved]
  - Respiratory rate increased [Not Recovered/Not Resolved]
  - Gait inability [Not Recovered/Not Resolved]
  - Joint swelling [Not Recovered/Not Resolved]
  - Procedural anxiety [Not Recovered/Not Resolved]
  - Insomnia [Not Recovered/Not Resolved]
  - Malaise [Not Recovered/Not Resolved]
  - Nasal congestion [Not Recovered/Not Resolved]
  - Blood pressure increased [Not Recovered/Not Resolved]
  - Throat tightness [Not Recovered/Not Resolved]
  - Dyspnoea [Not Recovered/Not Resolved]
  - Wheezing [Not Recovered/Not Resolved]
  - Anaphylactic reaction [Not Recovered/Not Resolved]
  - Pharyngeal swelling [Not Recovered/Not Resolved]
  - Arthralgia [Not Recovered/Not Resolved]
  - Cough [Not Recovered/Not Resolved]
  - Throat irritation [Not Recovered/Not Resolved]
  - Hypertension [Not Recovered/Not Resolved]
  - Pain [Not Recovered/Not Resolved]
  - Headache [Not Recovered/Not Resolved]
  - Treatment delayed [Not Recovered/Not Resolved]
  - Therapy interrupted [Not Recovered/Not Resolved]
  - Off label use [Not Recovered/Not Resolved]
  - Product dose omission in error [Not Recovered/Not Resolved]
  - Intentional dose omission [Not Recovered/Not Resolved]

NARRATIVE: CASE EVENT DATE: 20210803
